FAERS Safety Report 24010826 (Version 2)
Quarter: 2024Q3

REPORT INFORMATION
  Report Type: Spontaneous
  Country: US (occurrence: US)
  Receive Date: 20240625
  Receipt Date: 20240805
  Transmission Date: 20241017
  Serious: No
  Sender: BRISTOL MYERS SQUIBB
  Company Number: US-BRISTOL-MYERS SQUIBB COMPANY-2024-101625

PATIENT
  Age: 70 Year
  Sex: Female
  Weight: 86.138 kg

DRUGS (2)
  1. ORENCIA [Suspect]
     Active Substance: ABATACEPT
     Indication: Psoriatic arthropathy
     Route: 058
  2. ORENCIA [Suspect]
     Active Substance: ABATACEPT
     Indication: Rheumatoid arthritis

REACTIONS (2)
  - Product storage error [Unknown]
  - Insurance issue [Unknown]

NARRATIVE: CASE EVENT DATE: 20240614
